FAERS Safety Report 7488339-7 (Version None)
Quarter: 2011Q2

REPORT INFORMATION
  Report Type: 
  Country: None (occurrence: None)
  Receive Date: 20110518
  Receipt Date: 20110503
  Transmission Date: 20111010
  Serious: Yes (Other)
  Sender: FDA-Public Use
  Company Number: US-MYLANLABS-2011S1009476

PATIENT
  Age: 22 Year
  Sex: Female

DRUGS (6)
  1. MYCOPHENOLATE MOFETIL [Suspect]
     Indication: IMMUNOSUPPRESSION
     Dosage: 1 G/DAY
     Route: 065
  2. MYCOPHENOLATE MOFETIL [Suspect]
     Dosage: REPORTED AS AN ENTIRE BOTTLE'S CONTENTS
     Route: 065
  3. PREDNISONE [Concomitant]
     Dosage: 5MG DAILY
  4. TACROLIMUS [Concomitant]
     Dosage: 6MG DAILY
  5. OMEPRAZOLE [Concomitant]
     Dosage: 20MG DAILY
  6. FERROUS SULFATE TAB [Concomitant]
     Dosage: 600MG DAILY

REACTIONS (3)
  - SUICIDE ATTEMPT [None]
  - DRUG EXPOSURE DURING PREGNANCY [None]
  - INTENTIONAL OVERDOSE [None]
